FAERS Safety Report 8259074-2 (Version None)
Quarter: 2012Q2

REPORT INFORMATION
  Report Type: 
  Country: None (occurrence: None)
  Receive Date: 20120404
  Receipt Date: 20120330
  Transmission Date: 20120825
  Serious: Yes (Hospitalization, Other)
  Sender: FDA-Public Use
  Company Number: JP-PFIZER INC-2012076577

PATIENT
  Age: 62 Year
  Sex: Female

DRUGS (3)
  1. CADUET [Suspect]
     Indication: LIPIDS ABNORMAL
  2. JANUVIA [Suspect]
     Indication: DIABETES MELLITUS
     Dosage: 50 MG, 1X/DAY
     Route: 048
     Dates: start: 20120224, end: 20120318
  3. CADUET [Suspect]
     Indication: HYPERTENSION
     Dosage: UNK
     Route: 048
     Dates: start: 20110101, end: 20120318

REACTIONS (2)
  - STEVENS-JOHNSON SYNDROME [None]
  - OCULOMUCOCUTANEOUS SYNDROME [None]
